FAERS Safety Report 21154569 (Version 3)
Quarter: 2022Q3

REPORT INFORMATION
  Report Type: Spontaneous
  Country: CA (occurrence: CA)
  Receive Date: 20220801
  Receipt Date: 20220909
  Transmission Date: 20221026
  Serious: Yes (Other)
  Sender: FDA-Public Use
  Company Number: CA-CELLTRION INC.-2022CA012156

PATIENT

DRUGS (12)
  1. INFLECTRA [Suspect]
     Active Substance: INFLIXIMAB-DYYB
     Indication: Crohn^s disease
     Dosage: 500MG,Q 0 WEEK DOSE
     Route: 042
     Dates: start: 20200320, end: 20200320
  2. INFLECTRA [Suspect]
     Active Substance: INFLIXIMAB-DYYB
     Dosage: 500MG,Q 2 WEEK DOSE
     Route: 042
     Dates: start: 20200403, end: 20200403
  3. INFLECTRA [Suspect]
     Active Substance: INFLIXIMAB-DYYB
     Dosage: 500MG,Q 6 WEEK DOSE
     Route: 042
     Dates: start: 20200501, end: 20200501
  4. INFLECTRA [Suspect]
     Active Substance: INFLIXIMAB-DYYB
     Dosage: 500 MG EVERY 8WEEKS
     Route: 042
     Dates: start: 20200623, end: 20200825
  5. INFLECTRA [Suspect]
     Active Substance: INFLIXIMAB-DYYB
     Dosage: 500 MG EVERY 6WEEKS
     Route: 042
     Dates: start: 20201006, end: 20201117
  6. INFLECTRA [Suspect]
     Active Substance: INFLIXIMAB-DYYB
     Dosage: 500MG,RE-INDUCTION: Q 0,2,6, WEEKS THEN Q 8 WEEKS
     Route: 042
     Dates: start: 20210611, end: 20211115
  7. INFLECTRA [Suspect]
     Active Substance: INFLIXIMAB-DYYB
     Dosage: 500 MG EVERY 6WEEKS
     Route: 042
     Dates: start: 20211223
  8. INFLECTRA [Suspect]
     Active Substance: INFLIXIMAB-DYYB
     Dosage: 500 MG EVERY 6WEEKS
     Route: 042
     Dates: start: 20220608
  9. INFLECTRA [Suspect]
     Active Substance: INFLIXIMAB-DYYB
     Dosage: 500 MG, RE-INDUCTION WEEK 0,2,6 THEN EVERY 6 WEEKS NOT STARTED YET
     Route: 042
  10. HYDROCHLOROTHIAZIDE [Concomitant]
     Active Substance: HYDROCHLOROTHIAZIDE
     Dosage: 1 DF, DOSAGE INFO NOT AVAILABLE
     Route: 065
  11. LEVOTHYROXINE [Concomitant]
     Active Substance: LEVOTHYROXINE
     Dosage: 1 DF, DOSAGE INFO NOT AVAILABLE
     Route: 065
  12. PROPRANOLOL [Concomitant]
     Active Substance: PROPRANOLOL HYDROCHLORIDE
     Dosage: 1 DF, DOSAGE INFO NOT AVAILABLE
     Route: 065

REACTIONS (5)
  - Sepsis [Unknown]
  - Cholecystectomy [Unknown]
  - Drug level decreased [Unknown]
  - Off label use [Unknown]
  - Infection [Unknown]
